FAERS Safety Report 6125639-7 (Version None)
Quarter: 2009Q1

REPORT INFORMATION
  Report Type: 
  Country: None (occurrence: None)
  Receive Date: 20090318
  Receipt Date: 20090302
  Transmission Date: 20090719
  Serious: Yes (Hospitalization, Other)
  Sender: FDA-Public Use
  Company Number: JPI-P-006399

PATIENT
  Sex: Female

DRUGS (3)
  1. LUVOX [Suspect]
     Indication: DEPRESSION
     Dosage: 25 MG (25 MG, 1 IN 1 D), ORAL : (50 MG, 1 D), ORAL : (25 MG, 1 D), ORAL
     Route: 048
     Dates: start: 20080425, end: 20080519
  2. LUVOX [Suspect]
     Indication: DEPRESSION
     Dosage: 25 MG (25 MG, 1 IN 1 D), ORAL : (50 MG, 1 D), ORAL : (25 MG, 1 D), ORAL
     Route: 048
     Dates: start: 20080520, end: 20081013
  3. LUVOX [Suspect]
     Indication: DEPRESSION
     Dosage: 25 MG (25 MG, 1 IN 1 D), ORAL : (50 MG, 1 D), ORAL : (25 MG, 1 D), ORAL
     Route: 048
     Dates: start: 20081014, end: 20081020

REACTIONS (4)
  - CAESAREAN SECTION [None]
  - CEPHALO-PELVIC DISPROPORTION [None]
  - DRUG EXPOSURE DURING PREGNANCY [None]
  - PREMATURE RUPTURE OF MEMBRANES [None]
